FAERS Safety Report 8898145 (Version 1)
Quarter: 2012Q4

REPORT INFORMATION
  Report Type: 
  Country: US (occurrence: US)
  Receive Date: 20121109
  Receipt Date: 20121109
  Transmission Date: 20130627
  Serious: Yes (Hospitalization)
  Sender: FDA-Public Use
  Company Number: US-BIOGENIDEC-2012BI049519

PATIENT
  Age: 55 Year
  Sex: Female

DRUGS (1)
  1. AVONEX [Suspect]
     Indication: MULTIPLE SCLEROSIS
     Route: 030
     Dates: start: 19961001

REACTIONS (4)
  - Bladder cancer [Recovered/Resolved]
  - Memory impairment [Not Recovered/Not Resolved]
  - Scar [Not Recovered/Not Resolved]
  - Cystitis [Not Recovered/Not Resolved]
